FAERS Safety Report 23849359 (Version 1)
Quarter: 2024Q2

REPORT INFORMATION
  Report Type: Spontaneous
  Country: CN (occurrence: CN)
  Receive Date: 20240513
  Receipt Date: 20240513
  Transmission Date: 20240715
  Serious: Yes (Hospitalization, Other)
  Sender: FDA-Public Use
  Company Number: CN-MLMSERVICE-20240425-PI038092-00058-1

PATIENT
  Age: 68 Year
  Sex: Male

DRUGS (5)
  1. ATROPINE SULFATE [Suspect]
     Active Substance: ATROPINE SULFATE
     Indication: Product used for unknown indication
     Dosage: EVERY 10 MINUTES
  2. PIPERACILLIN AND TAZOBACTAM [Concomitant]
     Active Substance: PIPERACILLIN SODIUM\TAZOBACTAM SODIUM
     Indication: Prophylaxis
     Dosage: EVERY 8 HOURS
  3. CHARCOAL ACTIVATED [Concomitant]
     Active Substance: ACTIVATED CHARCOAL
     Indication: Chemical poisoning
  4. MANNITOL [Concomitant]
     Active Substance: MANNITOL
     Indication: Chemical poisoning
  5. PRALIDOXIME IODIDE [Concomitant]
     Indication: Chemical poisoning

REACTIONS (6)
  - Portal venous gas [Recovering/Resolving]
  - Ileus paralytic [Recovering/Resolving]
  - Pneumatosis intestinalis [Recovering/Resolving]
  - Abdominal compartment syndrome [Recovering/Resolving]
  - Gastrointestinal necrosis [Recovering/Resolving]
  - Intestinal obstruction [Recovering/Resolving]
